APPROVED DRUG PRODUCT: KETOROLAC TROMETHAMINE
Active Ingredient: KETOROLAC TROMETHAMINE
Strength: 30MG/ML
Dosage Form/Route: INJECTABLE;INJECTION
Application: A217166 | Product #002 | TE Code: AP
Applicant: ASPIRO PHARMA LTD
Approved: Jun 20, 2023 | RLD: No | RS: No | Type: RX